FAERS Safety Report 8843309 (Version 2)
Quarter: 2012Q4

REPORT INFORMATION
  Report Type: Report from Study
  Country: JP (occurrence: JP)
  Receive Date: 20121016
  Receipt Date: 20121228
  Transmission Date: 20130627
  Serious: Yes (Hospitalization)
  Sender: FDA-Public Use
  Company Number: JP-ABBOTT-11P-087-0886251-00

PATIENT
  Age: 66 Year
  Sex: Male
  Weight: 64 kg

DRUGS (4)
  1. HUMIRA 40 MG/ 0.8 ML PRE-FILLED SYRINGE [Suspect]
     Indication: RHEUMATOID ARTHRITIS
     Route: 058
     Dates: start: 20100623, end: 20120612
  2. HUMIRA 40 MG/ 0.8 ML PRE-FILLED SYRINGE [Suspect]
  3. TACROLIMUS HYDRATE [Concomitant]
     Indication: RHEUMATOID ARTHRITIS
     Dosage: 1.5 mg daily
     Dates: start: 20100623
  4. ATORVASTATIN CALCIUM [Concomitant]
     Indication: HYPERLIPIDAEMIA
     Dosage: 10 mg daily
     Dates: start: 20080105

REACTIONS (2)
  - Pyrexia [Recovering/Resolving]
  - Upper respiratory tract inflammation [Recovering/Resolving]
